FAERS Safety Report 16531435 (Version 2)
Quarter: 2019Q3

REPORT INFORMATION
  Report Type: Spontaneous
  Country: US (occurrence: US)
  Receive Date: 20190705
  Receipt Date: 20190809
  Transmission Date: 20191004
  Serious: Yes (Other)
  Sender: FDA-Public Use
  Company Number: US-PFIZER INC-2019278800

PATIENT
  Age: 58 Year
  Sex: Female
  Weight: 90.72 kg

DRUGS (12)
  1. MORPHINE [Concomitant]
     Active Substance: MORPHINE
     Indication: NEURALGIA
     Dosage: UNK (30 MG THREE TIMES A DAY BUT SHE ONLY TAKES 2 FOR MOST)
     Dates: start: 2011
  2. HUMULIN N [Concomitant]
     Active Substance: INSULIN HUMAN
     Indication: DIABETES MELLITUS
     Dosage: 60 IU, 1X/DAY
     Dates: start: 201905
  3. LYRICA [Suspect]
     Active Substance: PREGABALIN
     Indication: NEURALGIA
  4. ATORVASTATIN [Concomitant]
     Active Substance: ATORVASTATIN
     Indication: PROPHYLAXIS
     Dosage: 20 MG, 1X/DAY (20 MG ONCE AT NIGHT BY MOUTH)
     Route: 048
     Dates: start: 2019
  5. LYRICA [Suspect]
     Active Substance: PREGABALIN
     Indication: DIABETIC NEUROPATHY
     Dosage: 100 MG, DAILY (100 MG ONE CAPSULE A DAY)
  6. NORTRIPTYLINE [Concomitant]
     Active Substance: NORTRIPTYLINE
     Indication: EMOTIONAL DISORDER
     Dosage: 200 MG, 1X/DAY (FOUR 50 MG PILLS AT NIGHT)
     Dates: start: 2009
  7. CARBAMAZEPINE. [Concomitant]
     Active Substance: CARBAMAZEPINE
     Indication: DIABETES MELLITUS
     Dosage: 700 MG, DAILY(TWO 200 MG IN THE EVENING, AND ONE 300 MG IN THE MORNING)
  8. NORTRIPTYLINE [Concomitant]
     Active Substance: NORTRIPTYLINE
     Indication: PAIN
  9. CARBAMAZEPINE. [Concomitant]
     Active Substance: CARBAMAZEPINE
     Indication: NEURALGIA
     Dosage: 900 MG, DAILY [400 MG IN THE MORNING AND 500 MG IN THE EVENING]
  10. ATENOLOL. [Concomitant]
     Active Substance: ATENOLOL
     Indication: HYPERTENSION
     Dosage: 50 MG, 1X/DAY (50 MG ONCE A DAY IN THE MORNING)
     Dates: start: 2007
  11. PANTOPRAZOLE [Concomitant]
     Active Substance: PANTOPRAZOLE
     Indication: GASTROOESOPHAGEAL REFLUX DISEASE
     Dosage: 40 MG, 1X/DAY(40 MG ONCE A DAY BY MOUTH)
     Route: 048
     Dates: start: 2013
  12. HYDROCHLOROTHIAZIDE. [Concomitant]
     Active Substance: HYDROCHLOROTHIAZIDE
     Indication: DIURETIC THERAPY
     Dosage: 25 MG, 1X/DAY(25 MG ONCE IN THE MORNING)
     Dates: start: 2007

REACTIONS (7)
  - Overweight [Unknown]
  - Diabetes mellitus [Unknown]
  - Swelling [Unknown]
  - Suicidal ideation [Unknown]
  - Crying [Unknown]
  - Memory impairment [Unknown]
  - Condition aggravated [Unknown]
